FAERS Safety Report 7603318-4 (Version None)
Quarter: 2011Q3

REPORT INFORMATION
  Report Type: 
  Country: None (occurrence: None)
  Receive Date: 20110712
  Receipt Date: 20110629
  Transmission Date: 20111222
  Serious: Yes (Other)
  Sender: FDA-Public Use
  Company Number: PHFR2011GB02920

PATIENT
  Sex: Male

DRUGS (5)
  1. CLOZAPINE [Suspect]
     Dosage: 300 MG, DAILY
  2. CLOZAPINE [Suspect]
     Indication: SCHIZOPHRENIA
     Dosage: 300 MG, DAILY
     Route: 048
     Dates: start: 20110404
  3. HYOSCINE HYDROBROMIDE [Concomitant]
     Dosage: 300 UG/DAY
     Route: 048
  4. CLOZAPINE [Suspect]
     Dosage: 325 MG, DAILY
  5. CLOZAPINE [Suspect]
     Dosage: 275 MG/DAY
     Route: 048
     Dates: start: 20110421

REACTIONS (8)
  - TACHYCARDIA [None]
  - FALL [None]
  - ORTHOSTATIC HYPOTENSION [None]
  - DIZZINESS [None]
  - ASTHENIA [None]
  - CIRCULATORY COLLAPSE [None]
  - EOSINOPHIL COUNT INCREASED [None]
  - SEDATION [None]
